FAERS Safety Report 13681519 (Version 1)
Quarter: 2017Q2

REPORT INFORMATION
  Report Type: Spontaneous
  Country: US (occurrence: US)
  Receive Date: 20170623
  Receipt Date: 20170623
  Transmission Date: 20170830
  Serious: No
  Sender: FDA-Public Use
  Company Number: US-IPSEN BIOPHARMACEUTICALS, INC.-2016-01731

PATIENT
  Age: 19 Year
  Sex: Female
  Weight: 56.69 kg

DRUGS (1)
  1. DYSPORT [Suspect]
     Active Substance: ABOBOTULINUMTOXINA
     Indication: HYPERHIDROSIS
     Dosage: 400 U
     Route: 065
     Dates: start: 201512, end: 201512

REACTIONS (2)
  - Drug effect decreased [Unknown]
  - Inappropriate schedule of drug administration [Unknown]
